FAERS Safety Report 12896630 (Version 2)
Quarter: 2017Q1

REPORT INFORMATION
  Report Type: Other
  Country: FR (occurrence: FR)
  Receive Date: 20161031
  Receipt Date: 20170202
  Transmission Date: 20170428
  Serious: Yes (Other)
  Sender: FDA-Public Use
  Company Number: FR-WARNER CHILCOTT, LLC-1059050

PATIENT
  Age: 71 Year
  Sex: Female

DRUGS (9)
  1. ACTONEL [Suspect]
     Active Substance: RISEDRONATE SODIUM
     Route: 048
  2. XYZALL [Suspect]
     Active Substance: LEVOCETIRIZINE DIHYDROCHLORIDE
     Route: 048
  3. CALTRATE [Suspect]
     Active Substance: CALCIUM CARBONATE
     Route: 048
  4. PIASCLEDINE [Suspect]
     Active Substance: AVOCADO OIL\SOYBEAN OIL
     Route: 048
  5. ARTELAC [Suspect]
     Active Substance: HYPROMELLOSES
     Route: 031
  6. ENZYME PREPARATIONS [Suspect]
     Active Substance: UNSPECIFIED INGREDIENT
     Route: 042
  7. UVEDOSE [Suspect]
     Active Substance: CHOLECALCIFEROL
     Route: 048
  8. PARACETAMOL [Suspect]
     Active Substance: ACETAMINOPHEN
     Route: 048
  9. TRAMADOL. [Suspect]
     Active Substance: TRAMADOL
     Route: 048

REACTIONS (2)
  - Cholangiocarcinoma [Not Recovered/Not Resolved]
  - Hepatic lesion [Not Recovered/Not Resolved]

NARRATIVE: CASE EVENT DATE: 20160301
